FAERS Safety Report 8177124 (Version 4)
Quarter: 2013Q3

REPORT INFORMATION
  Report Type: Spontaneous
  Country: US (occurrence: US)
  Receive Date: 20111012
  Receipt Date: 20130816
  Transmission Date: 20140515
  Serious: Yes (Other)
  Sender: FDA-Public Use
  Company Number: US-ROCHE-787384

PATIENT
  Age: 21 Year
  Sex: Male
  Weight: 97.61 kg

DRUGS (2)
  1. ACCUTANE [Suspect]
     Indication: ACNE
     Route: 048
     Dates: start: 20000828, end: 20001212
  2. ACCUTANE [Suspect]
     Route: 048
     Dates: start: 20001212, end: 2001

REACTIONS (13)
  - Crohn^s disease [Unknown]
  - Colitis [Unknown]
  - Proctitis [Unknown]
  - Colitis ulcerative [Unknown]
  - Inflammatory bowel disease [Unknown]
  - Anxiety [Unknown]
  - Intestinal haemorrhage [Unknown]
  - Intestinal obstruction [Unknown]
  - Anxiety disorder [Unknown]
  - Sleep disorder [Unknown]
  - Colitis [Unknown]
  - Irritable bowel syndrome [Unknown]
  - Haemorrhoids [Unknown]
